FAERS Safety Report 14149774 (Version 1)
Quarter: 2017Q4

REPORT INFORMATION
  Report Type: Spontaneous
  Country: TR (occurrence: TR)
  Receive Date: 20171101
  Receipt Date: 20171101
  Transmission Date: 20180321
  Serious: Yes (Hospitalization, Other)
  Sender: FDA-Public Use
  Company Number: PHHY2017TR159487

PATIENT
  Age: 3 Year
  Sex: Female
  Weight: 11.5 kg

DRUGS (2)
  1. METHYLPREDNISOLONE. [Suspect]
     Active Substance: METHYLPREDNISOLONE
     Indication: OBSTRUCTION GASTRIC
     Dosage: 20 MG, QD
     Route: 048
  2. INTERFERON GAMMA-1B [Concomitant]
     Active Substance: INTERFERON GAMMA-1B
     Indication: CHRONIC GRANULOMATOUS DISEASE
     Dosage: 30 UG, 3 TIMES A WEEK
     Route: 065

REACTIONS (8)
  - Pneumonia [Recovered/Resolved]
  - Diastolic dysfunction [Recovered/Resolved]
  - Dyspnoea [Recovered/Resolved]
  - Pericarditis constrictive [Recovered/Resolved]
  - Pyrexia [Recovered/Resolved]
  - Cardiac failure congestive [Recovered/Resolved]
  - Tachycardia [Recovered/Resolved]
  - Aspergillus infection [Recovered/Resolved]
